FAERS Safety Report 18973178 (Version 1)
Quarter: 2021Q1

REPORT INFORMATION
  Report Type: Spontaneous
  Country: US (occurrence: US)
  Receive Date: 20210304
  Receipt Date: 20210304
  Transmission Date: 20210420
  Serious: Yes (Hospitalization)
  Sender: FDA-Public Use
  Company Number: None

PATIENT
  Age: 68 Year
  Sex: Male
  Weight: 76.66 kg

DRUGS (1)
  1. PEMBROLIZUMAB (PEMBROLIZUMAB 50MG/VIL INJ) [Suspect]
     Active Substance: PEMBROLIZUMAB
     Indication: MALIGNANT MELANOMA
     Route: 042
     Dates: start: 20201013, end: 20201013

REACTIONS (3)
  - Respiratory failure [None]
  - Pneumonia bacterial [None]
  - Interstitial lung disease [None]

NARRATIVE: CASE EVENT DATE: 20201027
